FAERS Safety Report 5502717-4 (Version None)
Quarter: 2007Q4

REPORT INFORMATION
  Report Type: 
  Country: None (occurrence: None)
  Receive Date: 20071026
  Receipt Date: 20071017
  Transmission Date: 20080405
  Serious: Yes (Other)
  Sender: FDA-Public Use
  Company Number: PAR_01770_2007

PATIENT
  Sex: Female
  Weight: 81.6475 kg

DRUGS (3)
  1. IBUPROFEN [Suspect]
     Indication: TENDONITIS
     Dosage: (DF)
  2. NAPROXEN SODIUM [Suspect]
     Indication: TENDONITIS
     Dosage: (1760 MG IN THE AFTERNOON; ORAL)
     Route: 048
     Dates: start: 20071016
  3. ACETYLSALICYLIC ACID SRT [Suspect]
     Indication: TENDONITIS
     Dosage: (DF)

REACTIONS (3)
  - HAEMATOCHEZIA [None]
  - HAEMATURIA [None]
  - INCORRECT DOSE ADMINISTERED [None]
